FAERS Safety Report 12161294 (Version 2)
Quarter: 2016Q2

REPORT INFORMATION
  Report Type: Spontaneous
  Country: EG (occurrence: EG)
  Receive Date: 20160308
  Receipt Date: 20160418
  Transmission Date: 20160815
  Serious: Yes (Other)
  Sender: FDA-Public Use
  Company Number: EG-ALLERGAN-1635662US

PATIENT
  Age: 50 Year
  Sex: Female

DRUGS (1)
  1. COMBIGAN [Suspect]
     Active Substance: BRIMONIDINE TARTRATE\TIMOLOL MALEATE
     Indication: OPEN ANGLE GLAUCOMA
     Dosage: UNK, BID
     Route: 047
     Dates: start: 20160216, end: 20160221

REACTIONS (5)
  - Eye pain [Unknown]
  - Intraocular pressure increased [Unknown]
  - Headache [Unknown]
  - Product quality issue [Unknown]
  - Counterfeit drug administered [Unknown]

NARRATIVE: CASE EVENT DATE: 20160216
